FAERS Safety Report 7313685-7 (Version None)
Quarter: 2011Q1

REPORT INFORMATION
  Report Type: 
  Country: None (occurrence: None)
  Receive Date: 20110225
  Receipt Date: 20110222
  Transmission Date: 20110831
  Serious: Yes (Hospitalization, Other)
  Sender: FDA-Public Use
  Company Number: US-PFIZER INC-2010166997

PATIENT
  Sex: Female

DRUGS (1)
  1. CHANTIX [Suspect]
     Indication: SMOKING CESSATION THERAPY
     Dosage: 0.5 MG / 1 MG
     Dates: start: 20070205, end: 20080930

REACTIONS (8)
  - SUICIDE ATTEMPT [None]
  - INTENTIONAL OVERDOSE [None]
  - ABNORMAL BEHAVIOUR [None]
  - EMOTIONAL DISTRESS [None]
  - MENTAL DISORDER [None]
  - AGGRESSION [None]
  - DEPRESSION [None]
  - ANXIETY [None]
